FAERS Safety Report 9359542 (Version 2)
Quarter: 2013Q2

REPORT INFORMATION
  Report Type: Spontaneous
  Country: IL (occurrence: IL)
  Receive Date: 20130620
  Receipt Date: 20130625
  Transmission Date: 20140414
  Serious: Yes (Other)
  Sender: FDA-Public Use
  Company Number: PHHY2013IL061700

PATIENT
  Age: 8 Month
  Sex: Male

DRUGS (3)
  1. OCTREOTIDE [Suspect]
     Indication: HYPERINSULINAEMIA
     Dosage: 5 UG/KG, UNK
     Route: 058
  2. OCTREOTIDE [Suspect]
     Dosage: 10 UG/KG, UNK
     Route: 058
  3. GLUCOSE [Concomitant]
     Dosage: UNK UKN, UNK
     Route: 042

REACTIONS (5)
  - Drug-induced liver injury [Unknown]
  - Aspartate aminotransferase increased [Recovered/Resolved]
  - Alanine aminotransferase increased [Recovered/Resolved]
  - Cholelithiasis [Unknown]
  - Bile duct stone [Unknown]
